FAERS Safety Report 25101583 (Version 2)
Quarter: 2025Q3

REPORT INFORMATION
  Report Type: Spontaneous
  Country: EU (occurrence: EU)
  Receive Date: 20250320
  Receipt Date: 20250809
  Transmission Date: 20251020
  Serious: Yes (Other)
  Sender: ALEXION PHARMACEUTICALS
  Company Number: EU-ASTRAZENECA-202503EEA013895AT

PATIENT
  Age: 43 Year
  Sex: Male

DRUGS (7)
  1. SOLIRIS [Suspect]
     Active Substance: ECULIZUMAB
     Route: 065
  2. CELLCEPT [Concomitant]
     Active Substance: MYCOPHENOLATE MOFETIL
     Route: 065
  3. LAPINE T-LYMPHOCYTE IMMUNE GLOBULIN [Concomitant]
     Active Substance: LAPINE T-LYMPHOCYTE IMMUNE GLOBULIN
     Route: 065
  4. BELATACEPT [Concomitant]
     Active Substance: BELATACEPT
     Route: 065
  5. PENICILLIN V [Concomitant]
     Active Substance: PENICILLIN V
     Route: 065
  6. VALCYTE [Concomitant]
     Active Substance: VALGANCICLOVIR HYDROCHLORIDE
     Route: 065
  7. SULFAMETROLE\TRIMETHOPRIM [Concomitant]
     Active Substance: SULFAMETROLE\TRIMETHOPRIM
     Route: 065

REACTIONS (6)
  - Pneumoperitoneum [Unknown]
  - Kidney transplant rejection [Unknown]
  - Bicytopenia [Unknown]
  - Respiratory syncytial virus infection [Unknown]
  - COVID-19 [Unknown]
  - Cytomegalovirus infection [Unknown]
